FAERS Safety Report 23934018 (Version 1)
Quarter: 2024Q2

REPORT INFORMATION
  Report Type: Spontaneous
  Country: GB (occurrence: None)
  Receive Date: 20240603
  Receipt Date: 20240603
  Transmission Date: 20240716
  Serious: Yes (Other)
  Sender: FDA-Public Use
  Company Number: 2024A128831

PATIENT
  Age: 39 Year
  Sex: Male

DRUGS (6)
  1. DAPAGLIFLOZIN [Suspect]
     Active Substance: DAPAGLIFLOZIN
     Dates: start: 20240403
  2. HYDROCORTISONE [Concomitant]
     Active Substance: HYDROCORTISONE
     Dosage: APPLY TWICE DAILY
  3. HYDROXOCOBALAMIN [Concomitant]
     Active Substance: HYDROXOCOBALAMIN
     Dosage: THREE TIMES A WEEK FOR 2 WEEKS
     Dates: start: 20240515
  4. LANSOPRAZOLE [Concomitant]
     Active Substance: LANSOPRAZOLE
     Dates: start: 20240305, end: 20240402
  5. MIRTAZAPINE [Concomitant]
     Active Substance: MIRTAZAPINE
     Dates: start: 20230818
  6. YALTORMIN SR [Concomitant]
     Dates: start: 20230818

REACTIONS (3)
  - Fungal skin infection [Unknown]
  - Balanoposthitis [Unknown]
  - Rash [Unknown]
